FAERS Safety Report 8444054-4 (Version None)
Quarter: 2012Q2

REPORT INFORMATION
  Report Type: 
  Country: None (occurrence: None)
  Receive Date: 20120323
  Receipt Date: 20110707
  Transmission Date: 20120825
  Serious: Yes (Hospitalization)
  Sender: FDA-Public Use
  Company Number: 163-21880-11070754

PATIENT
  Age: 77 Year
  Sex: Male

DRUGS (1)
  1. REVLIMID [Suspect]
     Indication: MULTIPLE MYELOMA
     Dosage: 25 MG, DAILY DAYS 1-21 EVERY 28 DAYS, PO
     Route: 048
     Dates: start: 20110613, end: 20110702

REACTIONS (4)
  - FULL BLOOD COUNT DECREASED [None]
  - CHILLS [None]
  - ASTHENIA [None]
  - PYREXIA [None]
